FAERS Safety Report 18719757 (Version 2)
Quarter: 2021Q1

REPORT INFORMATION
  Report Type: Spontaneous
  Country: US (occurrence: US)
  Receive Date: 20210109
  Receipt Date: 20210305
  Transmission Date: 20210419
  Serious: No
  Sender: FDA-Public Use
  Company Number: US-ASTRAZENECA-2021A001129

PATIENT
  Sex: Female
  Weight: 72.6 kg

DRUGS (1)
  1. IMFINZI [Suspect]
     Active Substance: DURVALUMAB
     Indication: CHEMOTHERAPY
     Route: 042
     Dates: start: 202010

REACTIONS (1)
  - Weight increased [Unknown]
